FAERS Safety Report 5376499-3 (Version None)
Quarter: 2007Q2

REPORT INFORMATION
  Report Type: 
  Country: None (occurrence: None)
  Receive Date: 20070628
  Receipt Date: 20070622
  Transmission Date: 20071010
  Serious: Yes (Other)
  Sender: FDA-Public Use
  Company Number: 056-C5013-07061029

PATIENT
  Age: 47 Year
  Sex: Female

DRUGS (2)
  1. CC-5013 (LENALIDOMIDE) (CAPSULES) [Suspect]
     Indication: 5Q-SYNDROME
     Dosage: 10 MG, 1 IN 1 D, ORAL
     Route: 048
     Dates: start: 20070530, end: 20070604
  2. EXJADE [Concomitant]

REACTIONS (3)
  - EYE OEDEMA [None]
  - PRURITUS [None]
  - SWELLING FACE [None]
